FAERS Safety Report 7211422-8 (Version None)
Quarter: 2011Q1

REPORT INFORMATION
  Report Type: 
  Country: None (occurrence: None)
  Receive Date: 20110105
  Receipt Date: 20101125
  Transmission Date: 20110831
  Serious: Yes (Other)
  Sender: FDA-Public Use
  Company Number: NL-AMGEN-US428831

PATIENT

DRUGS (4)
  1. ENBREL [Suspect]
     Dosage: 50 MG, QWK
     Dates: start: 20100617
  2. PANADEINE CO [Concomitant]
  3. FOLIC ACID [Concomitant]
  4. METHOTREXATE [Concomitant]
     Dosage: 4 UNK, QWK

REACTIONS (6)
  - BONE PAIN [None]
  - INJECTION SITE ERYTHEMA [None]
  - VEIN PAIN [None]
  - THERAPEUTIC RESPONSE UNEXPECTED [None]
  - INJECTION SITE PRURITUS [None]
  - MUSCLE RUPTURE [None]
